FAERS Safety Report 7014317-8 (Version None)
Quarter: 2010Q3

REPORT INFORMATION
  Report Type: 
  Country: None (occurrence: None)
  Receive Date: 20100922
  Receipt Date: 20100913
  Transmission Date: 20110219
  Serious: Yes (Hospitalization, Other)
  Sender: FDA-Public Use
  Company Number: 2010US003255

PATIENT
  Age: 61 Year
  Sex: Male
  Weight: 108 kg

DRUGS (4)
  1. PROGRAF [Suspect]
     Indication: RENAL TRANSPLANT
     Dosage: 4 MG, BID, ORAL
     Route: 048
     Dates: start: 20020224
  2. MYCOPHENOLATE MOFETIL [Concomitant]
  3. PREDNISONE TAB [Concomitant]
  4. NITROGLYCERIN (GLYCERYL TRINITRATE) TABLET [Concomitant]

REACTIONS (17)
  - ATRIAL FIBRILLATION [None]
  - CHRONIC ALLOGRAFT NEPHROPATHY [None]
  - CORONARY ARTERY DISEASE [None]
  - DIABETES MELLITUS [None]
  - GENERALISED OEDEMA [None]
  - HYPERLIPIDAEMIA [None]
  - HYPERTENSION [None]
  - LEFT ATRIAL DILATATION [None]
  - LEFT VENTRICULAR HYPERTROPHY [None]
  - PERICARDIAL EFFUSION [None]
  - PLEURAL EFFUSION [None]
  - PULMONARY CONGESTION [None]
  - RENAL FAILURE ACUTE [None]
  - SLEEP APNOEA SYNDROME [None]
  - SYNCOPE [None]
  - TRANSPLANT FAILURE [None]
  - VENTRICULAR EXTRASYSTOLES [None]
